FAERS Safety Report 9160808 (Version 2)
Quarter: 2013Q3

REPORT INFORMATION
  Report Type: Report from Study
  Country: CH (occurrence: CH)
  Receive Date: 20130313
  Receipt Date: 20130916
  Transmission Date: 20140515
  Serious: Yes (Hospitalization)
  Sender: FDA-Public Use
  Company Number: CH-BRISTOL-MYERS SQUIBB COMPANY-17464181

PATIENT
  Age: 41 Year
  Sex: Male

DRUGS (4)
  1. CETUXIMAB [Suspect]
     Indication: OESOPHAGEAL CARCINOMA
     Dosage: 18NV11-18NV11?25NOV11-UNK 520MG?LAST DOSE ON 5DC11
     Route: 042
     Dates: start: 20111118
  2. CISPLATIN FOR INJ [Suspect]
     Indication: OESOPHAGEAL CARCINOMA
     Route: 042
     Dates: start: 20111118
  3. TAXOTERE [Suspect]
     Indication: OESOPHAGEAL CARCINOMA
     Route: 042
     Dates: start: 20111118
  4. ASPIRIN CARDIO [Concomitant]
     Route: 048
     Dates: start: 20111205

REACTIONS (2)
  - Peripheral ischaemia [Recovered/Resolved]
  - Femoral artery embolism [Recovered/Resolved]
